FAERS Safety Report 14531414 (Version 1)
Quarter: 2018Q1

REPORT INFORMATION
  Report Type: Spontaneous
  Country: US (occurrence: US)
  Receive Date: 20180214
  Receipt Date: 20180214
  Transmission Date: 20180509
  Serious: Yes (Other)
  Sender: FDA-Public Use
  Company Number: None

PATIENT

DRUGS (4)
  1. DESVENLAFAINE SUCCINATE 50MG ER TAB [Suspect]
     Active Substance: DESVENLAFAXINE SUCCINATE
     Indication: STRESS
     Dosage: 1 PILL/DAY 1X DAILY BY MOUTH
     Route: 048
  2. DESVENLAFAINE SUCCINATE 50MG ER TAB [Suspect]
     Active Substance: DESVENLAFAXINE SUCCINATE
     Indication: ANXIETY
     Dosage: 1 PILL/DAY 1X DAILY BY MOUTH
     Route: 048
  3. DESVENLAFAINE SUCCINATE 50MG ER TAB [Suspect]
     Active Substance: DESVENLAFAXINE SUCCINATE
     Indication: BIPOLAR DISORDER
     Dosage: 1 PILL/DAY 1X DAILY BY MOUTH
     Route: 048
  4. DESVENLAFAINE SUCCINATE 50MG ER TAB [Suspect]
     Active Substance: DESVENLAFAXINE SUCCINATE
     Indication: PERSONALITY DISORDER
     Dosage: 1 PILL/DAY 1X DAILY BY MOUTH
     Route: 048

REACTIONS (2)
  - Depression [None]
  - Anxiety [None]
